FAERS Safety Report 13116204 (Version 1)
Quarter: 2017Q1

REPORT INFORMATION
  Report Type: Spontaneous
  Country: US (occurrence: US)
  Receive Date: 20170116
  Receipt Date: 20170116
  Transmission Date: 20170428
  Serious: Yes (Other)
  Sender: FDA-Public Use
  Company Number: US-AMGEN-USASP2017004372

PATIENT
  Sex: Male

DRUGS (1)
  1. IMLYGIC [Suspect]
     Active Substance: TALIMOGENE LAHERPAREPVEC
     Indication: MALIGNANT MELANOMA
     Dosage: UNK (108)
     Route: 065

REACTIONS (5)
  - Metastases to central nervous system [Unknown]
  - Pyrexia [Unknown]
  - Fall [Unknown]
  - Chills [Unknown]
  - Diarrhoea [Unknown]
